FAERS Safety Report 8791514 (Version 1)
Quarter: 2012Q4

REPORT INFORMATION
  Report Type: Spontaneous
  Country: US (occurrence: None)
  Receive Date: 20120914
  Receipt Date: 20120914
  Transmission Date: 20130627
  Serious: No
  Sender: FDA-Public Use
  Company Number: None

PATIENT
  Age: 41 Year
  Sex: Female
  Weight: 90.72 kg

DRUGS (1)
  1. CAPSAICIN [Suspect]
     Indication: ARTHRITIS

REACTIONS (3)
  - Thermal burn [None]
  - Pain [None]
  - Oedema peripheral [None]
